FAERS Safety Report 8711598 (Version 2)
Quarter: 2012Q4

REPORT INFORMATION
  Report Type: 
  Country: US (occurrence: US)
  Receive Date: 20120807
  Receipt Date: 20120905
  Transmission Date: 20130627
  Serious: Yes (Other)
  Sender: FDA-Public Use
  Company Number: US-ROCHE-1064997

PATIENT
  Age: 22 None
  Sex: Male
  Weight: 81.72 kg

DRUGS (2)
  1. ACCUTANE [Suspect]
     Indication: ACNE
     Route: 065
     Dates: start: 19980224, end: 19980325
  2. ACCUTANE [Suspect]
     Route: 065
     Dates: start: 19980224, end: 19980724

REACTIONS (6)
  - Colitis ulcerative [Unknown]
  - Inflammatory bowel disease [Unknown]
  - Large intestine polyp [Unknown]
  - Pain [Unknown]
  - Rectal polyp [Unknown]
  - Irritable bowel syndrome [Unknown]
